FAERS Safety Report 9302216 (Version 1)
Quarter: 2013Q2

REPORT INFORMATION
  Report Type: Spontaneous
  Country: FR (occurrence: FR)
  Receive Date: 20130522
  Receipt Date: 20130522
  Transmission Date: 20140414
  Serious: Yes (Hospitalization)
  Sender: FDA-Public Use
  Company Number: FR-B.I. PHARMACEUTICALS,INC./RIDGEFIELD-2013-BI-13548GD

PATIENT
  Age: 62 Year
  Sex: Female

DRUGS (2)
  1. PRADAXA [Suspect]
     Indication: CARDIAC ANEURYSM
     Dosage: 220 MG
     Route: 048
  2. PRADAXA [Suspect]
     Indication: INTRACARDIAC THROMBUS

REACTIONS (4)
  - Ankle fracture [Unknown]
  - Subcutaneous haematoma [Unknown]
  - Fall [Unknown]
  - Clumsiness [Unknown]
